FAERS Safety Report 9081244 (Version 1)
Quarter: 2013Q1

REPORT INFORMATION
  Report Type: Report from Study
  Country: US (occurrence: US)
  Receive Date: 20130130
  Receipt Date: 20130130
  Transmission Date: 20140127
  Serious: No
  Sender: FDA-Public Use
  Company Number: US-ABBOTT-12P-163-0952564-00

PATIENT
  Sex: Male

DRUGS (2)
  1. HUMIRA 40 MG/ 0.8 ML PRE-FILLED SYRINGE [Suspect]
     Indication: REITER^S SYNDROME
     Dates: start: 2007
  2. IBUPROFEN [Concomitant]
     Indication: REITER^S SYNDROME

REACTIONS (1)
  - Off label use [Not Recovered/Not Resolved]
